FAERS Safety Report 23686098 (Version 1)
Quarter: 2024Q1

REPORT INFORMATION
  Report Type: Spontaneous
  Country: JP (occurrence: JP)
  Receive Date: 20240329
  Receipt Date: 20240329
  Transmission Date: 20240410
  Serious: Yes (Other)
  Sender: FDA-Public Use
  Company Number: JP-SUN PHARMACEUTICAL INDUSTRIES LTD-2024RR-439555

PATIENT
  Age: 85 Year
  Sex: Male

DRUGS (2)
  1. IMATINIB [Suspect]
     Active Substance: IMATINIB
     Indication: Chronic myeloid leukaemia
     Dosage: 100 TO 200 MG/DAY
     Route: 065
  2. DASATINIB [Suspect]
     Active Substance: DASATINIB
     Indication: Chronic myeloid leukaemia
     Dosage: 20 MILLIGRAM, DAILY
     Route: 065

REACTIONS (5)
  - Thrombocytopenia [Unknown]
  - Oedema [Unknown]
  - Rash [Unknown]
  - Myalgia [Unknown]
  - Liver disorder [Unknown]
